FAERS Safety Report 9711783 (Version 1)
Quarter: 2013Q4

REPORT INFORMATION
  Report Type: Spontaneous
  Country: US (occurrence: US)
  Receive Date: 20131126
  Receipt Date: 20131126
  Transmission Date: 20140711
  Serious: No
  Sender: FDA-Public Use
  Company Number: US-BRISTOL-MYERS SQUIBB COMPANY-18818096

PATIENT
  Age: 59 Year
  Sex: Male

DRUGS (3)
  1. BYDUREON [Suspect]
  2. METFORMIN [Concomitant]
  3. JANUVIA [Concomitant]

REACTIONS (3)
  - Injection site mass [Not Recovered/Not Resolved]
  - Injection site pruritus [Recovered/Resolved]
  - Injection site pain [Unknown]
